FAERS Safety Report 7053957-7 (Version None)
Quarter: 2010Q4

REPORT INFORMATION
  Report Type: 
  Country: None (occurrence: None)
  Receive Date: 20101020
  Receipt Date: 20101005
  Transmission Date: 20110411
  Serious: Yes (Other)
  Sender: FDA-Public Use
  Company Number: CA-GENENTECH-308131

PATIENT
  Age: 52 Year
  Sex: Male

DRUGS (2)
  1. RITUXAN [Suspect]
     Indication: NON-HODGKIN'S LYMPHOMA
     Dosage: UNK
     Route: 042
     Dates: start: 20070101
  2. RITUXAN [Suspect]
     Dosage: UNK
     Route: 042
     Dates: start: 20100928

REACTIONS (5)
  - CHEST PAIN [None]
  - HEART RATE INCREASED [None]
  - HYPERHIDROSIS [None]
  - HYPOTENSION [None]
  - LYMPHOMA [None]
